FAERS Safety Report 5386908-1 (Version None)
Quarter: 2007Q3

REPORT INFORMATION
  Report Type: 
  Country: None (occurrence: None)
  Receive Date: 20070713
  Receipt Date: 20070705
  Transmission Date: 20080115
  Serious: Yes (Other)
  Sender: FDA-Public Use
  Company Number: IT-SHR-IT-2007-025608

PATIENT
  Sex: Female

DRUGS (1)
  1. MIRENA [Suspect]
     Indication: DRUG USE FOR UNKNOWN INDICATION
     Dosage: 20 A?G/DAY, CONT
     Route: 015

REACTIONS (2)
  - GENITAL HAEMORRHAGE [None]
  - PREMATURE MENOPAUSE [None]
